FAERS Safety Report 8187190-2 (Version None)
Quarter: 2012Q1

REPORT INFORMATION
  Report Type: 
  Country: None (occurrence: None)
  Receive Date: 20120306
  Receipt Date: 20120229
  Transmission Date: 20120608
  Serious: Yes (Other)
  Sender: FDA-Public Use
  Company Number: US-PFIZER INC-2012054535

PATIENT
  Sex: Female
  Weight: 75 kg

DRUGS (1)
  1. LYRICA [Suspect]
     Indication: PAIN
     Dosage: 75 MG, 4X/DAY
     Route: 048
     Dates: start: 20060101

REACTIONS (5)
  - FIBROMYALGIA [None]
  - ARTHRITIS [None]
  - WEIGHT INCREASED [None]
  - HEAD INJURY [None]
  - PAIN [None]
